FAERS Safety Report 17706139 (Version 1)
Quarter: 2020Q2

REPORT INFORMATION
  Report Type: Spontaneous
  Country: US (occurrence: US)
  Receive Date: 20200424
  Receipt Date: 20200424
  Transmission Date: 20200714
  Serious: No
  Sender: FDA-Public Use
  Company Number: US-TEVA-2019-US-1146532

PATIENT
  Sex: Male

DRUGS (2)
  1. CAPECITABINE. [Suspect]
     Active Substance: CAPECITABINE
     Indication: COLON CANCER STAGE II
     Dosage: 4000 MILLIGRAM DAILY;
     Route: 048
     Dates: start: 20190503
  2. CAPECITABINE. [Suspect]
     Active Substance: CAPECITABINE
     Dosage: FOR CYCLE 2
     Route: 048

REACTIONS (12)
  - Mouth ulceration [Recovering/Resolving]
  - Palmar-plantar erythrodysaesthesia syndrome [Recovering/Resolving]
  - Asthenia [Recovering/Resolving]
  - Fatigue [Recovering/Resolving]
  - Decreased appetite [Recovering/Resolving]
  - Dry eye [Recovering/Resolving]
  - Toxicity to various agents [Recovering/Resolving]
  - Pyrexia [Recovering/Resolving]
  - Rhinitis [Recovering/Resolving]
  - Malaise [Recovering/Resolving]
  - Parosmia [Recovering/Resolving]
  - Gastrointestinal disorder [Recovering/Resolving]

NARRATIVE: CASE EVENT DATE: 2019
